FAERS Safety Report 6557828 (Version 1)
Quarter: 2020Q3

REPORT INFORMATION
  Report Type: Spontaneous
  Country: GB (occurrence: GB)
  Receive Date: 20080221
  Receipt Date: 20080221
  Transmission Date: 20201104
  Serious: Yes (Other)
  Sender: FDA-Public Use
  Company Number: PHBS2008GB02227

PATIENT
  Age: 51 Year
  Sex: Female

DRUGS (4)
  1. ZOLEDRONIC ACID [Suspect]
     Active Substance: ZOLEDRONIC ACID
     Indication: METASTASES TO BONE
     Route: 042
     Dates: start: 200212
  2. PAMIDRONATE DISODIUM. [Suspect]
     Active Substance: PAMIDRONATE DISODIUM
     Indication: METASTASES TO BONE
     Route: 042
     Dates: start: 200201
  3. CLODRONATE DISODIUM [Suspect]
     Active Substance: CLODRONATE DISODIUM
     Indication: METASTASES TO BONE
     Route: 048
     Dates: start: 200104
  4. IBANDRONIC ACID. [Suspect]
     Active Substance: IBANDRONIC ACID
     Indication: METASTASES TO BONE
     Route: 048
     Dates: start: 200408

REACTIONS (16)
  - Actinomycosis [Recovered/Resolved]
  - Breath odour [Recovered/Resolved]
  - Mucosal inflammation [Recovered/Resolved]
  - Mouth ulceration [Recovered/Resolved]
  - Nasal disorder [Recovered/Resolved]
  - Bone disorder [Recovered/Resolved]
  - Sequestrectomy [Recovered/Resolved]
  - Osteonecrosis [Recovered/Resolved]
  - Teeth brittle [Recovered/Resolved]
  - Swelling face [Recovered/Resolved]
  - Dental caries [Recovered/Resolved]
  - Jaw disorder [Recovered/Resolved]
  - Weight decreased [Recovered/Resolved]
  - Bone sequestrum [Recovered/Resolved]
  - Tooth disorder [Recovered/Resolved]
  - Facial pain [Recovered/Resolved]
